FAERS Safety Report 5739947-2 (Version None)
Quarter: 2008Q2

REPORT INFORMATION
  Report Type: 
  Country: None (occurrence: None)
  Receive Date: 20080513
  Receipt Date: 20080506
  Transmission Date: 20081010
  Serious: Yes (Other)
  Sender: FDA-Public Use
  Company Number: 2008AP001144

PATIENT
  Sex: Male

DRUGS (11)
  1. AMLODIPINE BESYLATE [Suspect]
     Indication: HYPERTENSION
     Dosage: 5 MG; QD PO, 5 MG; PO; QD
     Route: 048
     Dates: start: 20080115
  2. AMLODIPINE BESYLATE [Suspect]
     Indication: HYPERTENSION
     Dosage: 5 MG; QD PO, 5 MG; PO; QD
     Route: 048
     Dates: start: 20080115
  3. AMITRIPTYLINE HYDROCHLORIDE [Concomitant]
  4. ACETYLSALICYLIC ACID SRT [Concomitant]
  5. ATORVASTATIN CALCIUM [Concomitant]
  6. BISACODYL (BISACODYL) [Concomitant]
  7. FUROSEMIDE [Concomitant]
  8. LOSARTAN POTASSIUM [Concomitant]
  9. INSULIN ASPART (INSULIN ASPART) [Concomitant]
  10. SODIUM BICARBONATE IN PLASTIC CONTAINER [Concomitant]
  11. OMEGA-3 MARINE TRIGLYCERIDES (OMEGA-3 MARINE TRIGLYCERIDES) [Concomitant]

REACTIONS (4)
  - BLOOD GLUCOSE INCREASED [None]
  - GLYCOSYLATED HAEMOGLOBIN INCREASED [None]
  - MALAISE [None]
  - PALPITATIONS [None]
